FAERS Safety Report 10216578 (Version 1)
Quarter: 2014Q2

REPORT INFORMATION
  Report Type: Report from Study
  Country: US (occurrence: US)
  Receive Date: 20140604
  Receipt Date: 20140604
  Transmission Date: 20141212
  Serious: Yes (Death)
  Sender: FDA-Public Use
  Company Number: PHHO2012US009376

PATIENT
  Sex: Male

DRUGS (1)
  1. ZORTRESS [Suspect]
     Indication: ORGAN TRANSPLANT
     Route: 048

REACTIONS (1)
  - Lung neoplasm malignant [Fatal]
